FAERS Safety Report 4871597-2 (Version None)
Quarter: 2005Q4

REPORT INFORMATION
  Report Type: 
  Country: None (occurrence: None)
  Receive Date: 20051230
  Receipt Date: 20051221
  Transmission Date: 20060501
  Serious: Yes (Life-Threatening)
  Sender: FDA-Public Use
  Company Number: TCI2005A04960

PATIENT
  Age: 78 Year
  Sex: Male

DRUGS (9)
  1. ACTOS [Suspect]
     Indication: DIABETES MELLITUS NON-INSULIN-DEPENDENT
     Dosage: 15 MG (15 MG, 1 IN 1 D), PER ORAL, 15 MG (15 MG, 1 IN 1 D) PER ORAL
     Route: 048
     Dates: start: 20051117, end: 20051123
  2. ACTOS [Suspect]
     Indication: DIABETES MELLITUS NON-INSULIN-DEPENDENT
     Dosage: 15 MG (15 MG, 1 IN 1 D), PER ORAL, 15 MG (15 MG, 1 IN 1 D) PER ORAL
     Route: 048
     Dates: start: 20051207
  3. BASEN            (VOGLIBOSE) [Suspect]
     Indication: DIABETES MELLITUS NON-INSULIN-DEPENDENT
     Dosage: 0.9 MG (0.3MG, 3 IN 1 D); PER ORAL, 0.6MG (0.2MG, 3 IN 1 D)
     Route: 048
     Dates: start: 20050808, end: 20051206
  4. BASEN            (VOGLIBOSE) [Suspect]
     Indication: DIABETES MELLITUS NON-INSULIN-DEPENDENT
     Dosage: 0.9 MG (0.3MG, 3 IN 1 D); PER ORAL, 0.6MG (0.2MG, 3 IN 1 D)
     Route: 048
     Dates: start: 20051207
  5. BLOPRESS                           (CANDESARTAN CILEXETIL) [Suspect]
     Indication: ESSENTIAL HYPERTENSION
     Dosage: 12MG (12MG, 1 IN 1 D) PER ORAL
     Route: 048
     Dates: start: 20050808
  6. NATEGLINIDE [Suspect]
     Indication: DIABETES MELLITUS NON-INSULIN-DEPENDENT
     Dosage: 270 MG (90 MG, 3 IN 1 D) PER ORAL
     Route: 048
     Dates: start: 20050803
  7. AMARYL [Suspect]
     Indication: DIABETES MELLITUS NON-INSULIN-DEPENDENT
     Dosage: 3 MG (1MG, 3 IN 1 D), 6MG, (3MG, 2 IN 1 D); 3MG (3MG, 1 IN 1 D); PER ORAL
     Route: 048
     Dates: start: 20050909, end: 20051116
  8. AMARYL [Suspect]
     Indication: DIABETES MELLITUS NON-INSULIN-DEPENDENT
     Dosage: 3 MG (1MG, 3 IN 1 D), 6MG, (3MG, 2 IN 1 D); 3MG (3MG, 1 IN 1 D); PER ORAL
     Route: 048
     Dates: start: 20051117, end: 20051123
  9. AMARYL [Suspect]
     Indication: DIABETES MELLITUS NON-INSULIN-DEPENDENT
     Dosage: 3 MG (1MG, 3 IN 1 D), 6MG, (3MG, 2 IN 1 D); 3MG (3MG, 1 IN 1 D); PER ORAL
     Route: 048
     Dates: start: 20051124, end: 20051124

REACTIONS (10)
  - ABNORMAL BEHAVIOUR [None]
  - ALCOHOL USE [None]
  - BLOOD GLUCOSE INCREASED [None]
  - DEPRESSED LEVEL OF CONSCIOUSNESS [None]
  - DYSKINESIA [None]
  - GLUCOSE URINE PRESENT [None]
  - HYPOGLYCAEMIC COMA [None]
  - MUSCULOSKELETAL STIFFNESS [None]
  - OVERDOSE [None]
  - TREMOR [None]
